FAERS Safety Report 5236028-1 (Version None)
Quarter: 2007Q1

REPORT INFORMATION
  Report Type: 
  Country: None (occurrence: None)
  Receive Date: 20061208
  Receipt Date: 20060315
  Transmission Date: 20070707
  Serious: Yes (Other)
  Sender: FDA-Public Use
  Company Number: 2006UW04472

PATIENT
  Age: 81 Year
  Sex: Female
  Weight: 72.574 kg

DRUGS (2)
  1. CRESTOR [Suspect]
     Indication: BLOOD CHOLESTEROL INCREASED
     Dosage: 10 MG QD PO
     Route: 048
  2. ZETIA [Concomitant]

REACTIONS (2)
  - DIZZINESS [None]
  - ILL-DEFINED DISORDER [None]
